FAERS Safety Report 6409964-8 (Version None)
Quarter: 2009Q4

REPORT INFORMATION
  Report Type: 
  Country: None (occurrence: None)
  Receive Date: 20091022
  Receipt Date: 20091015
  Transmission Date: 20100525
  Serious: Yes (Hospitalization, Other)
  Sender: FDA-Public Use
  Company Number: US-PURDUE-USA_2008_0032616

PATIENT
  Sex: Female

DRUGS (14)
  1. OXYCONTIN [Suspect]
     Indication: FIBROMYALGIA
     Dosage: 1120 MG, DAILY
     Dates: start: 20000101, end: 20030101
  2. OXYCONTIN [Suspect]
     Indication: INTERVERTEBRAL DISC DEGENERATION
  3. OXYCODONE HCL [Concomitant]
  4. XANAX [Concomitant]
  5. KLONOPIN [Concomitant]
  6. NEURONTIN [Concomitant]
  7. CELEBREX [Concomitant]
  8. BUSPAR [Concomitant]
  9. ESTRATEST [Concomitant]
  10. PRINIVIL [Concomitant]
  11. URECHOLINE [Concomitant]
  12. AMITRIPTYLINE [Concomitant]
  13. PREVACID [Concomitant]
  14. CELEXA [Concomitant]

REACTIONS (12)
  - ANHEDONIA [None]
  - ANXIETY [None]
  - DRUG ABUSE [None]
  - DRUG DEPENDENCE [None]
  - DRUG WITHDRAWAL SYNDROME [None]
  - GENERAL PHYSICAL HEALTH DETERIORATION [None]
  - HEPATITIS [None]
  - HYPERSOMNIA [None]
  - INTENTIONAL DRUG MISUSE [None]
  - MOOD SWINGS [None]
  - PAIN [None]
  - PERSONALITY CHANGE [None]
